FAERS Safety Report 10020651 (Version 2)
Quarter: 2013Q4

REPORT INFORMATION
  Report Type: Spontaneous
  Country: US (occurrence: None)
  Receive Date: 20131025
  Receipt Date: 20131031
  Transmission Date: 20140711
  Serious: Yes (Hospitalization)
  Sender: FDA-Public Use
  Company Number: KAMADA LTD MFR # 43043

PATIENT
  Age: 74 Year
  Sex: Female
  Weight: 61.24 kg

DRUGS (31)
  1. GLASSIA [Suspect]
     Indication: ALPHA-1 ANTI-TRYPSIN DECREASED
     Dosage: 3600+/-10%
     Route: 042
     Dates: start: 20130311
  2. LOSARTAN [Concomitant]
  3. PAXIL [Concomitant]
  4. METFORMIN [Concomitant]
  5. HYDROCODONE [Concomitant]
  6. PRADAXA [Concomitant]
  7. DIGOXIN [Concomitant]
  8. DILTIAZEM [Concomitant]
  9. FUROSEMIDE [Concomitant]
  10. GABAPENTIN [Concomitant]
  11. NITROBID PASTE [Concomitant]
  12. FLONASE [Concomitant]
  13. PROLROYUM [Concomitant]
  14. KLONOPIN [Concomitant]
  15. KLOR-CON [Concomitant]
  16. MONTELUKAST [Concomitant]
  17. PROBIOTICS [Concomitant]
  18. LEVEMIR [Concomitant]
  19. ATORVASTATIN [Concomitant]
  20. GOBIODIA [Concomitant]
  21. PRILOSEC [Concomitant]
  22. NISTATIN MOUTHWASH SWISH [Concomitant]
  23. VITAMIN B12 [Concomitant]
  24. VITAMIN D3 [Concomitant]
  25. CARBIDOPA-LEVODOPA [Concomitant]
  26. CARDIZEM HCL [Concomitant]
  27. ALBUTEROL [Concomitant]
  28. SINGULAIR [Concomitant]
  29. ZOFRAN [Concomitant]
  30. MIRALAX [Concomitant]
  31. SPIRIVA [Concomitant]

REACTIONS (3)
  - Pneumonia [None]
  - Oedema [None]
  - Chronic obstructive pulmonary disease [None]
